FAERS Safety Report 25346341 (Version 1)
Quarter: 2025Q2

REPORT INFORMATION
  Report Type: Spontaneous
  Country: CN (occurrence: CN)
  Receive Date: 20250522
  Receipt Date: 20250522
  Transmission Date: 20250716
  Serious: Yes (Hospitalization)
  Sender: ROCHE
  Company Number: CN-CHEPLA-2025006119

PATIENT
  Age: 56 Year
  Sex: Female
  Weight: 82 kg

DRUGS (10)
  1. BEVACIZUMAB [Suspect]
     Active Substance: BEVACIZUMAB
     Indication: Rectal cancer
     Route: 065
     Dates: start: 202410
  2. BEVACIZUMAB [Suspect]
     Active Substance: BEVACIZUMAB
     Dosage: APPROVAL NO. GYZZ SJ20170035; 8TH CYCLE XELOX + BEVACIZUMAB REGIMEN
     Route: 042
     Dates: start: 20250325, end: 20250325
  3. BEVACIZUMAB [Suspect]
     Active Substance: BEVACIZUMAB
     Route: 042
     Dates: start: 20250508
  4. CAPECITABINE [Suspect]
     Active Substance: CAPECITABINE
     Indication: Rectal cancer
     Route: 065
     Dates: start: 202410
  5. CAPECITABINE [Suspect]
     Active Substance: CAPECITABINE
     Route: 048
     Dates: start: 20250325, end: 20250512
  6. CAPECITABINE [Suspect]
     Active Substance: CAPECITABINE
     Route: 048
     Dates: start: 20250508
  7. OXALIPLATIN [Suspect]
     Active Substance: OXALIPLATIN
     Indication: Rectal cancer
     Route: 065
     Dates: start: 202410
  8. OXALIPLATIN [Suspect]
     Active Substance: OXALIPLATIN
     Dosage: APPROVAL NO. GYZZ J20150117, TWICE IN 21 DAYS, 40MG + NS 250ML D1, D5 IVGTT Q21D; 8TH CYCLE XELOX +
     Route: 042
     Dates: start: 20250325, end: 20250325
  9. SODIUM CHLORIDE [Concomitant]
     Active Substance: SODIUM CHLORIDE
     Indication: Medication dilution
     Dosage: SODIUM CHLORIDE INJECTION 250 ML, APPROVAL NO. GYZZ H20023146
     Route: 042
     Dates: start: 20250325, end: 20250325
  10. DEXTROSE [Concomitant]
     Active Substance: DEXTROSE MONOHYDRATE
     Indication: Medication dilution
     Dosage: APPROVAL NO. GYZZ H12020020
     Route: 042
     Dates: start: 20250325, end: 20250325

REACTIONS (1)
  - Drug-induced liver injury [Recovering/Resolving]

NARRATIVE: CASE EVENT DATE: 20250427
